FAERS Safety Report 5487564-4 (Version None)
Quarter: 2007Q4

REPORT INFORMATION
  Report Type: 
  Country: None (occurrence: None)
  Receive Date: 20071015
  Receipt Date: 20071008
  Transmission Date: 20080405
  Serious: Yes (Other)
  Sender: FDA-Public Use
  Company Number: 2007AL004269

PATIENT
  Age: 73 Year
  Sex: Male

DRUGS (5)
  1. METFORMIN HYDROCHLORIDE [Suspect]
     Indication: DIABETES MELLITUS
     Dosage: 1000 MG;BID;PO
     Route: 048
     Dates: start: 20070824, end: 20070831
  2. DILTIAZEM [Concomitant]
  3. NITROGLYCERIN [Concomitant]
  4. ACETYLSALICYLIC ACID SRT [Concomitant]
  5. GLICLAZIDE [Concomitant]

REACTIONS (3)
  - PROTEIN URINE PRESENT [None]
  - URINE ALBUMIN/CREATININE RATIO INCREASED [None]
  - VASCULITIC RASH [None]
